FAERS Safety Report 25201383 (Version 1)
Quarter: 2025Q2

REPORT INFORMATION
  Report Type: Spontaneous
  Country: JP (occurrence: JP)
  Receive Date: 20250416
  Receipt Date: 20250416
  Transmission Date: 20250716
  Serious: Yes (Other)
  Sender: MERCK SHARP AND DOHME
  Company Number: JP-MSD-2408JPN001706J

PATIENT

DRUGS (1)
  1. KEYTRUDA [Suspect]
     Active Substance: PEMBROLIZUMAB
     Indication: Non-small cell lung cancer
     Route: 065

REACTIONS (19)
  - Malignant neoplasm progression [Unknown]
  - Immune-mediated pancytopenia [Unknown]
  - Immune-mediated lung disease [Unknown]
  - Immune-mediated enterocolitis [Unknown]
  - Immune-mediated hepatitis [Unknown]
  - Cholangitis sclerosing [Unknown]
  - Immune-mediated pancreatitis [Unknown]
  - Immune-mediated arthritis [Unknown]
  - Immune-mediated myositis [Unknown]
  - Immune-mediated hypothyroidism [Unknown]
  - Immune-mediated hyperthyroidism [Unknown]
  - Adrenal insufficiency [Unknown]
  - Type 1 diabetes mellitus [Unknown]
  - Adverse event [Unknown]
  - Skin disorder [Unknown]
  - Immune-mediated dermatitis [Unknown]
  - Diarrhoea [Unknown]
  - Sarcopenia [Unknown]
  - Amylase increased [Unknown]
